FAERS Safety Report 7123618-4 (Version None)
Quarter: 2010Q4

REPORT INFORMATION
  Report Type: 
  Country: None (occurrence: None)
  Receive Date: 20101125
  Receipt Date: 20101122
  Transmission Date: 20110411
  Serious: Yes (Other)
  Sender: FDA-Public Use
  Company Number: ES-PFIZER INC-2010155241

PATIENT
  Age: 75 Year
  Sex: Male

DRUGS (7)
  1. ESTRACYT [Suspect]
     Indication: PROSTATE CANCER METASTATIC
     Dosage: 140 MG, 4X/DAY
     Dates: start: 20101101
  2. FENTANYL [Concomitant]
     Route: 062
  3. IBUPROFEN [Concomitant]
  4. PLAVIX [Concomitant]
  5. TRANGOREX [Concomitant]
  6. TEVETEN [Concomitant]
  7. OFTAN [Concomitant]

REACTIONS (3)
  - BURNING SENSATION [None]
  - PARALYSIS [None]
  - SOMNOLENCE [None]
